FAERS Safety Report 10541900 (Version 3)
Quarter: 2015Q1

REPORT INFORMATION
  Report Type: Spontaneous
  Country: US (occurrence: US)
  Receive Date: 20141024
  Receipt Date: 20150313
  Transmission Date: 20150720
  Serious: Yes (Hospitalization)
  Sender: FDA-Public Use
  Company Number: US-BAYER-2014-152994

PATIENT
  Age: 32 Year
  Sex: Female
  Weight: 63.49 kg

DRUGS (5)
  1. CELEXA [Concomitant]
     Active Substance: CITALOPRAM HYDROBROMIDE
  2. XANAX [Concomitant]
     Active Substance: ALPRAZOLAM
  3. MIRENA [Suspect]
     Active Substance: LEVONORGESTREL
     Indication: CONTRACEPTION
     Dosage: 20 MCG/24HR, CONT
     Route: 015
     Dates: start: 20100823, end: 20130121
  4. BETAMETHASONE [Concomitant]
     Active Substance: BETAMETHASONE
  5. ZOFRAN [Concomitant]
     Active Substance: ONDANSETRON HYDROCHLORIDE

REACTIONS (10)
  - Back pain [None]
  - Device dislocation [None]
  - Drug ineffective [None]
  - Pregnancy with contraceptive device [None]
  - Bed rest [None]
  - Pain [None]
  - Injury [None]
  - Medical device discomfort [None]
  - Premature labour [None]
  - Device issue [None]

NARRATIVE: CASE EVENT DATE: 201102
